FAERS Safety Report 5393468-8 (Version None)
Quarter: 2007Q3

REPORT INFORMATION
  Report Type: 
  Country: None (occurrence: None)
  Receive Date: 20070723
  Receipt Date: 20060627
  Transmission Date: 20080115
  Serious: No
  Sender: FDA-Public Use
  Company Number: A0608644A

PATIENT
  Age: 68 Year
  Sex: Female
  Weight: 102.3 kg

DRUGS (6)
  1. AVANDIA [Suspect]
     Dosage: 2MG TWICE PER DAY
     Route: 048
     Dates: start: 20040101
  2. NOVOLOG [Concomitant]
  3. PRINZIDE [Concomitant]
  4. ZETIA [Concomitant]
  5. PRAVACHOL [Concomitant]
  6. COLCHICINE [Concomitant]

REACTIONS (1)
  - BLOOD GLUCOSE INCREASED [None]
